FAERS Safety Report 10026932 (Version 1)
Quarter: 2014Q1

REPORT INFORMATION
  Report Type: Spontaneous
  Country: BR (occurrence: BR)
  Receive Date: 20140321
  Receipt Date: 20140321
  Transmission Date: 20141002
  Serious: Yes (Other)
  Sender: FDA-Public Use
  Company Number: BR-JNJFOC-20140308711

PATIENT
  Age: 49 Year
  Sex: Male

DRUGS (1)
  1. XARELTO [Suspect]
     Indication: THROMBOPHLEBITIS
     Route: 048
     Dates: start: 20131211, end: 20131211

REACTIONS (2)
  - Rash papular [Recovered/Resolved]
  - Dermatitis allergic [Recovered/Resolved]
